FAERS Safety Report 12519167 (Version 1)
Quarter: 2016Q2

REPORT INFORMATION
  Report Type: Spontaneous
  Country: RU (occurrence: RU)
  Receive Date: 20160630
  Receipt Date: 20160630
  Transmission Date: 20160815
  Serious: Yes (Hospitalization, Other)
  Sender: FDA-Public Use
  Company Number: RU-BAYER-2016-123428

PATIENT
  Age: 53 Year
  Sex: Female

DRUGS (2)
  1. ANGELIQ [Suspect]
     Active Substance: DROSPIRENONE\ESTRADIOL
     Indication: MENOPAUSAL SYMPTOMS
     Dosage: UNK
     Route: 048
     Dates: start: 201405, end: 201605
  2. MIRENA [Suspect]
     Active Substance: LEVONORGESTREL
     Indication: UTERINE POLYP
     Dosage: 20 MCG/24HR, CONT
     Route: 015
     Dates: start: 2009, end: 2014

REACTIONS (5)
  - Off label use [None]
  - Endometrial adenocarcinoma [None]
  - Uterine haemorrhage [None]
  - Vaginal haemorrhage [None]
  - Amenorrhoea [None]

NARRATIVE: CASE EVENT DATE: 2009
